FAERS Safety Report 6163962-0 (Version None)
Quarter: 2009Q2

REPORT INFORMATION
  Report Type: 
  Country: None (occurrence: None)
  Receive Date: 20090422
  Receipt Date: 20090416
  Transmission Date: 20091009
  Serious: Yes (Disabling)
  Sender: FDA-Public Use
  Company Number: FR-WYE-H08642509

PATIENT
  Age: 74 Year
  Sex: Male

DRUGS (4)
  1. CORDARONE [Suspect]
     Indication: ATRIAL FIBRILLATION
     Route: 048
     Dates: start: 20060101
  2. CORDARONE [Suspect]
     Indication: TACHYARRHYTHMIA
  3. CRESTOR [Concomitant]
     Dosage: DOSE UNKNOWN
     Route: 048
     Dates: start: 20070101, end: 20090304
  4. DIGITALINE NATIVELLE [Concomitant]
     Dosage: DOSE UNKNOWN
     Route: 065

REACTIONS (5)
  - COMMUNICATION DISORDER [None]
  - HYPOAESTHESIA [None]
  - PARAESTHESIA ORAL [None]
  - SPEECH DISORDER [None]
  - THROAT TIGHTNESS [None]
